FAERS Safety Report 19441027 (Version 1)
Quarter: 2021Q2

REPORT INFORMATION
  Report Type: Other
  Country: DE (occurrence: DE)
  Receive Date: 20210621
  Receipt Date: 20210621
  Transmission Date: 20210717
  Serious: Yes (Other)
  Sender: FDA-Public Use
  Company Number: DE-ROCHE-2183622

PATIENT
  Age: 49 Year
  Sex: Female

DRUGS (12)
  1. OCREVUS [Suspect]
     Active Substance: OCRELIZUMAB
     Route: 042
     Dates: start: 20190916
  2. DEKRISTOL [Concomitant]
     Active Substance: CHOLECALCIFEROL
  3. CORTISONE [Suspect]
     Active Substance: CORTISONE
     Indication: PREMEDICATION
     Route: 065
  4. IBANDRONIC ACID. [Concomitant]
     Active Substance: IBANDRONIC ACID
  5. OCREVUS [Suspect]
     Active Substance: OCRELIZUMAB
     Indication: RELAPSING-REMITTING MULTIPLE SCLEROSIS
     Route: 042
     Dates: start: 20180830, end: 20180830
  6. OCREVUS [Suspect]
     Active Substance: OCRELIZUMAB
     Route: 042
     Dates: start: 20180913
  7. DIAZEPAM. [Concomitant]
     Active Substance: DIAZEPAM
  8. CORTISONE [Suspect]
     Active Substance: CORTISONE
     Dosage: FOR 4 DAYS
     Route: 065
     Dates: start: 20191201
  9. OCREVUS [Suspect]
     Active Substance: OCRELIZUMAB
     Dosage: 182 DAYS
     Route: 042
     Dates: start: 20200316
  10. DULOXETINE. [Concomitant]
     Active Substance: DULOXETINE
  11. OCREVUS [Suspect]
     Active Substance: OCRELIZUMAB
     Route: 042
     Dates: start: 20190314
  12. CALCIUM [Suspect]
     Active Substance: CALCIUM
     Indication: PRODUCT USED FOR UNKNOWN INDICATION
     Dosage: EFFERVESCENT TABLET
     Route: 065
     Dates: start: 20190419

REACTIONS (20)
  - Disturbance in attention [Recovered/Resolved]
  - Migraine [Recovered/Resolved]
  - Dyspnoea [Recovered/Resolved]
  - Hyperventilation [Recovered/Resolved]
  - Initial insomnia [Recovered/Resolved]
  - Hyperhidrosis [Recovered/Resolved]
  - Emphysema [Not Recovered/Not Resolved]
  - Aggression [Recovered/Resolved]
  - Nervousness [Recovered/Resolved]
  - Muscle spasms [Recovered/Resolved]
  - Myalgia [Recovered/Resolved]
  - Dizziness [Recovered/Resolved]
  - Nausea [Recovered/Resolved]
  - Paranasal sinus discomfort [Recovered/Resolved]
  - Groin abscess [Recovered/Resolved]
  - Palpitations [Recovering/Resolving]
  - Vomiting [Recovered/Resolved]
  - Nasopharyngitis [Recovered/Resolved]
  - Multiple sclerosis relapse [Recovered/Resolved]
  - Vocal cord leukoplakia [Recovered/Resolved]

NARRATIVE: CASE EVENT DATE: 20180830
